FAERS Safety Report 22592291 (Version 1)
Quarter: 2023Q2

REPORT INFORMATION
  Report Type: Spontaneous
  Country: ES (occurrence: ES)
  Receive Date: 20230613
  Receipt Date: 20230613
  Transmission Date: 20230722
  Serious: Yes (Death)
  Sender: FDA-Public Use
  Company Number: None

PATIENT
  Age: 53 Year
  Sex: Male

DRUGS (4)
  1. SEVOFLURANE [Suspect]
     Active Substance: SEVOFLURANE
     Indication: Product used for unknown indication
     Dosage: 100% LIQUIDO PARA INHALACION DEL VAPOR , 1 FRASCO DE 250 ML
     Route: 055
     Dates: start: 20230414, end: 20230418
  2. PRIMPERAN [Concomitant]
     Active Substance: METOCLOPRAMIDE HYDROCHLORIDE
     Indication: Product used for unknown indication
     Dosage: 1MG /ML SOLUCION ORAL , 1 FRASCO DE 200 ML
     Dates: start: 20230314, end: 20230418
  3. ERYTHROMYCIN [Concomitant]
     Active Substance: ERYTHROMYCIN
     Indication: Product used for unknown indication
     Dosage: PANPHARMA 1G POLVO PARA SOLUCION PARA PERFUSION EFG, 1 VIAL
     Dates: start: 20230314, end: 20230414
  4. NOREPINEPHRINE [Suspect]
     Active Substance: NOREPINEPHRINE
     Indication: Haemodynamic instability
     Dosage: NAD HASTA 0.3 GAMMAS
     Route: 042
     Dates: start: 2023

REACTIONS (1)
  - Ventricular tachycardia [Fatal]

NARRATIVE: CASE EVENT DATE: 20230418
